FAERS Safety Report 8487964-4 (Version None)
Quarter: 2012Q3

REPORT INFORMATION
  Report Type: 
  Country: None (occurrence: None)
  Receive Date: 20120705
  Receipt Date: 20120629
  Transmission Date: 20120928
  Serious: Yes (Other)
  Sender: FDA-Public Use
  Company Number: PHFR2012GB003358

PATIENT
  Sex: Female
  Weight: 77 kg

DRUGS (6)
  1. AQUEOUS CREAM [Concomitant]
  2. CALCIUM CARBONATE [Concomitant]
     Dosage: 2 DF, DAILY
  3. DIAZEPAM [Concomitant]
     Dosage: 5 MG, UNK
  4. ATENOLOL [Concomitant]
  5. TEGRETOL [Suspect]
     Indication: EPILEPSY
     Dosage: 200 MG, UNK
     Route: 048
  6. RANITIDINE [Concomitant]
     Dosage: 1 DF, DAILY

REACTIONS (3)
  - CELLULITIS [None]
  - RASH GENERALISED [None]
  - DRUG DISPENSING ERROR [None]
